FAERS Safety Report 9831000 (Version 2)
Quarter: 2014Q1

REPORT INFORMATION
  Report Type: Spontaneous
  Country: US (occurrence: US)
  Receive Date: 20140120
  Receipt Date: 20140219
  Transmission Date: 20141002
  Serious: Yes (Other)
  Sender: FDA-Public Use
  Company Number: PHEH2014US001323

PATIENT
  Sex: Female

DRUGS (5)
  1. TRILEPTAL [Suspect]
     Dosage: UNK UKN, UNK
     Dates: start: 201011
  2. RISPERDAL [Suspect]
     Dosage: UNK UKN, UNK
  3. GEODON [Suspect]
     Dosage: UNK UKN, UNK
  4. XANAX [Suspect]
     Dosage: UNK UKN, UNK
  5. NYQUIL [Suspect]
     Dosage: UNK UKN, UNK

REACTIONS (6)
  - Psychotic disorder [Unknown]
  - Schizophrenia [Unknown]
  - Bipolar disorder [Unknown]
  - Somnolence [Unknown]
  - Fatigue [Unknown]
  - Drug ineffective [Unknown]
